FAERS Safety Report 23165682 (Version 1)
Quarter: 2023Q4

REPORT INFORMATION
  Report Type: Spontaneous
  Country: FR (occurrence: FR)
  Receive Date: 20231109
  Receipt Date: 20231109
  Transmission Date: 20240110
  Serious: Yes (Hospitalization)
  Sender: FDA-Public Use
  Company Number: None

PATIENT
  Age: 74 Year
  Sex: Male

DRUGS (12)
  1. VALSARTAN [Interacting]
     Active Substance: VALSARTAN
     Indication: Product used for unknown indication
     Dosage: 05/160 MG: 0-1-0 TABLETS/DAY
     Route: 048
     Dates: end: 20230203
  2. FUROSEMIDE [Interacting]
     Active Substance: FUROSEMIDE
     Indication: Hypertension
     Dosage: 40 MILLIGRAM, QD1-1/2-0
     Route: 048
  3. AMLODIPINE [Interacting]
     Active Substance: AMLODIPINE BESYLATE
     Indication: Product used for unknown indication
     Dosage: 05/160 MG: 0-1-0 TABLETS/DAY
     Route: 048
     Dates: end: 20230203
  4. DAPAGLIFLOZIN [Interacting]
     Active Substance: DAPAGLIFLOZIN
     Indication: Cardiac failure
     Dosage: 10 MILLIGRAM, QD,0-1-0
     Route: 048
     Dates: end: 20230203
  5. LANTUS [Concomitant]
     Active Substance: INSULIN GLARGINE
     Dosage: UNK
     Route: 065
  6. JANUVIA [Concomitant]
     Active Substance: SITAGLIPTIN PHOSPHATE
     Dosage: UNK
     Route: 065
  7. ATORVASTATIN [Concomitant]
     Active Substance: ATORVASTATIN
     Dosage: UNK
     Route: 065
  8. ALFUZOSIN HYDROCHLORIDE [Concomitant]
     Active Substance: ALFUZOSIN HYDROCHLORIDE
     Dosage: UNK
     Route: 065
  9. LANSOPRAZOLE [Concomitant]
     Active Substance: LANSOPRAZOLE
     Dosage: UNK
     Route: 065
  10. OLODATEROL HYDROCHLORIDE\TIOTROPIUM BROMIDE MONOHYDRATE [Concomitant]
     Active Substance: OLODATEROL HYDROCHLORIDE\TIOTROPIUM BROMIDE MONOHYDRATE
     Dosage: UNK
     Route: 065
  11. DOLIPRANE [Concomitant]
     Active Substance: ACETAMINOPHEN
     Dosage: UNK
     Route: 065
  12. SMECTA [Concomitant]
     Active Substance: MONTMORILLONITE
     Dosage: UNK
     Route: 065

REACTIONS (2)
  - Acute kidney injury [Recovering/Resolving]
  - Drug interaction [Unknown]

NARRATIVE: CASE EVENT DATE: 20230203
